FAERS Safety Report 19270194 (Version 1)
Quarter: 2021Q2

REPORT INFORMATION
  Report Type: Spontaneous
  Country: US (occurrence: US)
  Receive Date: 20210518
  Receipt Date: 20210518
  Transmission Date: 20210717
  Serious: Yes (Other)
  Sender: FDA-Public Use
  Company Number: US-BAYER-2021-142573

PATIENT
  Age: 64 Year
  Sex: Female

DRUGS (2)
  1. ASPIRIN (CARDIO) [Suspect]
     Active Substance: ASPIRIN
  2. CLOPIDOGREL [Suspect]
     Active Substance: CLOPIDOGREL BISULFATE

REACTIONS (7)
  - Oesophageal varices haemorrhage [None]
  - Peritonitis bacterial [None]
  - Labelled drug-drug interaction medication error [None]
  - Anaemia [None]
  - Haematochezia [None]
  - Retroperitoneal haematoma [None]
  - Ascites [None]
